FAERS Safety Report 7514031-6 (Version None)
Quarter: 2011Q2

REPORT INFORMATION
  Report Type: 
  Country: None (occurrence: None)
  Receive Date: 20110531
  Receipt Date: 20100210
  Transmission Date: 20111010
  Serious: No
  Sender: FDA-Public Use
  Company Number: US-BAYER-201013931NA

PATIENT
  Age: 49 Year
  Sex: Male

DRUGS (2)
  1. AVELOX [Suspect]
     Indication: PRODUCT USED FOR UNKNOWN INDICATION
  2. COUMADIN [Concomitant]

REACTIONS (3)
  - RASH [None]
  - LIP BLISTER [None]
  - HYPERSENSITIVITY [None]
